FAERS Safety Report 15378994 (Version 1)
Quarter: 2018Q3

REPORT INFORMATION
  Report Type: Spontaneous
  Country: CN (occurrence: CN)
  Receive Date: 20180913
  Receipt Date: 20180913
  Transmission Date: 20181010
  Serious: Yes (Hospitalization, Other)
  Sender: FDA-Public Use
  Company Number: CN-GLAXOSMITHKLINE-CN2018GSK165816

PATIENT
  Age: 50 Year
  Sex: Female

DRUGS (5)
  1. SALCATONIN [Concomitant]
     Active Substance: CALCITONIN SALMON
  2. ALENDRONATE [Concomitant]
     Active Substance: ALENDRONATE SODIUM
  3. ADEFOVIR DIPIVOXIL. [Suspect]
     Active Substance: ADEFOVIR DIPIVOXIL
     Indication: HEPATITIS B
     Dosage: 10 MG, QD
     Route: 048
  4. LAMIVUDINE. [Suspect]
     Active Substance: LAMIVUDINE
     Indication: HEPATITIS B
     Dosage: 100 MG, QD
     Route: 048
  5. ENTECAVIR. [Concomitant]
     Active Substance: ENTECAVIR
     Dosage: 0.5 MG, QD

REACTIONS (18)
  - Fanconi syndrome [Recovering/Resolving]
  - Bone pain [Recovering/Resolving]
  - Muscular weakness [Recovering/Resolving]
  - Osteoporosis [Unknown]
  - Renal tubular dysfunction [Recovering/Resolving]
  - Inappropriate schedule of drug administration [Unknown]
  - Weight decreased [Unknown]
  - Drug resistance [Unknown]
  - Gait disturbance [Recovering/Resolving]
  - Acidosis [Recovering/Resolving]
  - Blood alkaline phosphatase increased [Recovering/Resolving]
  - Renal disorder [Recovering/Resolving]
  - Osteomalacia [Recovering/Resolving]
  - Electrolyte imbalance [Recovering/Resolving]
  - Condition aggravated [Unknown]
  - Proteinuria [Recovering/Resolving]
  - Blood uric acid decreased [Recovering/Resolving]
  - Pain [Recovering/Resolving]

NARRATIVE: CASE EVENT DATE: 201302
